FAERS Safety Report 16045721 (Version 1)
Quarter: 2019Q2

REPORT INFORMATION
  Report Type: Spontaneous
  Country: US (occurrence: US)
  Receive Date: 20190306
  Receipt Date: 20190306
  Transmission Date: 20190711
  Serious: Yes (Hospitalization)
  Sender: FDA-Public Use
  Company Number: None

PATIENT
  Age: 73 Year
  Sex: Female

DRUGS (13)
  1. PRENISONE [Concomitant]
  2. COSENTYX [Suspect]
     Active Substance: SECUKINUMAB
     Indication: PSORIATIC ARTHROPATHY
     Dosage: ?          OTHER FREQUENCY:Q 4 WKS;?
     Route: 058
     Dates: start: 20171205
  3. PROPRANOLOL [Concomitant]
     Active Substance: PROPRANOLOL HYDROCHLORIDE
  4. ENBREL [Concomitant]
     Active Substance: ETANERCEPT
  5. VENLAFAXINE [Concomitant]
     Active Substance: VENLAFAXINE HYDROCHLORIDE
  6. LEFLUNOMIDE. [Concomitant]
     Active Substance: LEFLUNOMIDE
  7. AMLODIPINE [Concomitant]
     Active Substance: AMLODIPINE BESYLATE
  8. CLOBEX [Concomitant]
     Active Substance: CLOBETASOL PROPIONATE
  9. OXYCODONE [Concomitant]
     Active Substance: OXYCODONE
  10. MORPHINE SUL [Concomitant]
     Active Substance: MORPHINE SULFATE
  11. GABAPENTIN. [Concomitant]
     Active Substance: GABAPENTIN
  12. LOVASTATIN. [Concomitant]
     Active Substance: LOVASTATIN
  13. SYMBICORT [Concomitant]
     Active Substance: BUDESONIDE\FORMOTEROL FUMARATE DIHYDRATE

REACTIONS (2)
  - Paralysis [None]
  - Eye disorder [None]
